FAERS Safety Report 8609266-5 (Version None)
Quarter: 2012Q3

REPORT INFORMATION
  Report Type: 
  Country: None (occurrence: None)
  Receive Date: 20120821
  Receipt Date: 20120716
  Transmission Date: 20120928
  Serious: Yes (Hospitalization, Disabling, Other)
  Sender: FDA-Public Use
  Company Number: US-009507513-1203USA03313

PATIENT

DRUGS (11)
  1. FOSAMAX [Suspect]
     Indication: OSTEOPENIA
     Dosage: 70 MG, QW
     Route: 048
     Dates: start: 19990101, end: 20100101
  2. FOSAMAX [Suspect]
     Dosage: 70 MG, QD
     Route: 048
  3. CADUET [Concomitant]
     Indication: BLOOD CHOLESTEROL
  4. AVALIDE [Concomitant]
     Indication: BLOOD PRESSURE
  5. AVALIDE [Concomitant]
     Indication: HYPERTENSION
     Dosage: 300/12.5
     Route: 048
     Dates: start: 20090501
  6. AVAPRO [Concomitant]
     Indication: HYPERTENSION
  7. METOPROLOL TARTRATE [Concomitant]
     Indication: HYPERTENSION
     Dosage: 25 MG, UNK
     Route: 048
  8. AMLODIPINE [Concomitant]
     Indication: BLOOD PRESSURE
  9. ALLEGRA [Concomitant]
  10. CRESTOR [Suspect]
  11. CADUET [Concomitant]
     Indication: HYPERTENSION
     Dosage: 5/20
     Route: 048
     Dates: end: 20100501

REACTIONS (38)
  - HAEMORRHAGIC ANAEMIA [None]
  - FALL [None]
  - HYPERLIPIDAEMIA [None]
  - HEPATIC ENZYME INCREASED [None]
  - ANAEMIA [None]
  - BURSITIS [None]
  - CATARACT [None]
  - GOUT [None]
  - CONSTIPATION [None]
  - OSTEOPOROSIS [None]
  - FRACTURE MALUNION [None]
  - TOOTH DISORDER [None]
  - EYE DISORDER [None]
  - TRIGGER FINGER [None]
  - STRESS FRACTURE [None]
  - BONE DENSITY DECREASED [None]
  - DEVICE FAILURE [None]
  - VENTRICULAR EXTRASYSTOLES [None]
  - STAPHYLOCOCCAL INFECTION [None]
  - GAIT DISTURBANCE [None]
  - FLATULENCE [None]
  - HYPOKALAEMIA [None]
  - NAUSEA [None]
  - EXTRASYSTOLES [None]
  - OSTEOARTHRITIS [None]
  - DRUG INEFFECTIVE [None]
  - OSTEOSCLEROSIS [None]
  - BURSA CALCIFICATION [None]
  - ADVERSE EVENT [None]
  - DIFFERENTIAL WHITE BLOOD CELL COUNT ABNORMAL [None]
  - FEMUR FRACTURE [None]
  - ORTHOSTATIC HYPOTENSION [None]
  - OVERDOSE [None]
  - ARTHRALGIA [None]
  - HYPOMAGNESAEMIA [None]
  - SINUS TACHYCARDIA [None]
  - DEHYDRATION [None]
  - HYPOTENSION [None]
